FAERS Safety Report 24737352 (Version 1)
Quarter: 2024Q4

REPORT INFORMATION
  Report Type: Spontaneous
  Country: US (occurrence: None)
  Receive Date: 20241213
  Receipt Date: 20241213
  Transmission Date: 20250115
  Serious: Yes (Hospitalization)
  Sender: Public
  Company Number: None

PATIENT
  Age: 77 Year
  Sex: Male
  Weight: 120 kg

DRUGS (1)
  1. RIVAROXABAN [Suspect]
     Active Substance: RIVAROXABAN
     Indication: Atrial fibrillation
     Dosage: FREQUENCY : DAILY;?
     Route: 048
     Dates: end: 20241003

REACTIONS (5)
  - Gastric haemorrhage [None]
  - Gastritis [None]
  - Dyspnoea [None]
  - Chest pain [None]
  - Weight decreased [None]

NARRATIVE: CASE EVENT DATE: 20241003
